FAERS Safety Report 12519307 (Version 3)
Quarter: 2016Q3

REPORT INFORMATION
  Report Type: Spontaneous
  Country: FR (occurrence: FR)
  Receive Date: 20160630
  Receipt Date: 20160713
  Transmission Date: 20161109
  Serious: Yes (Life-Threatening, Hospitalization, Other)
  Sender: FDA-Public Use
  Company Number: FR-PFIZER INC-2016317068

PATIENT
  Age: 78 Year
  Sex: Female

DRUGS (17)
  1. GAVISCON /01405501/ [Concomitant]
     Active Substance: SODIUM ALGINATE\SODIUM BICARBONATE
     Dosage: 1 DF, AS NEEDED
  2. PREVISCAN /00789001/ [Concomitant]
     Active Substance: FLUINDIONE
     Dosage: 15 MG, 1X/DAY (IN THE EVENING)
  3. LOVENOX [Concomitant]
     Active Substance: ENOXAPARIN SODIUM
     Dosage: 5000 IU, 2X/DAY (AT 7.00 AM AND 7.00 PM)
     Route: 058
  4. LYSANXIA [Concomitant]
     Active Substance: PRAZEPAM
     Dosage: 5 MG, AS NEEDED
  5. TAZOCILLINE [Suspect]
     Active Substance: PIPERACILLIN SODIUM\TAZOBACTAM SODIUM
     Indication: PNEUMONIA
     Dosage: 4 G, 3X/DAY
     Route: 042
     Dates: start: 20160218, end: 20160303
  6. BISOCE [Concomitant]
     Active Substance: BISOPROLOL
     Dosage: 2.5 MG, 1X/DAY (IN THE MORNING)
  7. SPECIAFOLDINE [Concomitant]
     Active Substance: FOLIC ACID
     Dosage: 10 MG, WEEKLY (EVERY WEDNESDAY MORNINGS)
  8. TRIATEC /00885601/ [Concomitant]
     Active Substance: RAMIPRIL
     Dosage: 2.5 MG, 1X/DAY (IN THE EVENING)
  9. IXPRIM [Concomitant]
     Active Substance: ACETAMINOPHEN\TRAMADOL HYDROCHLORIDE
     Indication: PAIN
     Dosage: 1 DF, AS NEEDED (3 DF MAXIMUM)
  10. EUPANTOL [Suspect]
     Active Substance: PANTOPRAZOLE SODIUM
     Dosage: 40 MG, DAILY
     Route: 048
  11. METOJECT [Suspect]
     Active Substance: METHOTREXATE SODIUM
     Indication: RHEUMATOID ARTHRITIS
     Dosage: 7.5 MG, DAILY
     Route: 058
     Dates: start: 2016
  12. SERETIDE [Concomitant]
     Active Substance: FLUTICASONE PROPIONATE\SALMETEROL XINAFOATE
     Dosage: 1 DF, 2X/DAY (MORNING AND EVENING)
  13. LYRICA [Concomitant]
     Active Substance: PREGABALIN
     Dosage: 50 MG, 3X/DAY (AT 8.00 AM, 4.00 PM AND IN THE EVENING)
  14. FUNGIZONE [Concomitant]
     Active Substance: AMPHOTERICIN B
     Dosage: 1 DF, 3X/DAY (1 COFFEE SPOON MORNING-MIDDAY-EVENING)
  15. CIFLOX /00697201/ [Suspect]
     Active Substance: CIPROFLOXACIN
     Indication: PNEUMONIA
     Dosage: 500 MG, 2X/DAY
     Route: 042
     Dates: start: 20160218, end: 20160303
  16. CRESTOR [Concomitant]
     Active Substance: ROSUVASTATIN CALCIUM
     Dosage: 5 MG, 1X/DAY (IN THE EVENING)
  17. FUROSEMIDE. [Concomitant]
     Active Substance: FUROSEMIDE
     Dosage: 40 MG, 1X/DAY (IN THE MORNING)

REACTIONS (3)
  - Bone marrow failure [Recovering/Resolving]
  - Sputum purulent [Unknown]
  - Pyrexia [Unknown]

NARRATIVE: CASE EVENT DATE: 201604
